FAERS Safety Report 8215006-4 (Version None)
Quarter: 2012Q1

REPORT INFORMATION
  Report Type: 
  Country: None (occurrence: None)
  Receive Date: 20120316
  Receipt Date: 20120305
  Transmission Date: 20120608
  Serious: Yes (Hospitalization, Other)
  Sender: FDA-Public Use
  Company Number: NL-AMGEN-NLDSP2011038775

PATIENT
  Sex: Female
  Weight: 90 kg

DRUGS (17)
  1. ENBREL [Suspect]
     Dosage: 50 MG, WEEKLY
     Dates: start: 20120101
  2. METHOTREXATE [Suspect]
     Indication: RHEUMATOID ARTHRITIS
     Dosage: 15 MG, UNK
     Dates: end: 20110701
  3. PREDNISONE TAB [Concomitant]
     Indication: INFECTION
     Dosage: UNK
  4. AERIUS                             /01398501/ [Concomitant]
     Dosage: UNK
  5. METFORMIN HCL [Concomitant]
     Indication: TYPE 2 DIABETES MELLITUS
     Dosage: UNK
  6. EZETIMIBE [Concomitant]
     Dosage: UNK
  7. METAMUCIL-2 [Concomitant]
  8. ENBREL [Suspect]
     Dosage: 50 MG, WEEKLY
     Dates: start: 20110101, end: 20110701
  9. ZANTAC [Concomitant]
     Dosage: UNK
  10. CALCIUM [Concomitant]
     Dosage: UNK
  11. SINTROM [Concomitant]
     Dosage: UNK
  12. FOLIC ACID [Concomitant]
     Dosage: UNK
  13. PREDNISONE TAB [Concomitant]
     Indication: RHEUMATOID ARTHRITIS
  14. MODALIM [Concomitant]
     Dosage: UNK
  15. ENBREL [Suspect]
     Indication: RHEUMATOID ARTHRITIS
     Dosage: 50 MG, WEEKLY
     Dates: start: 20060101
  16. HYDROCHLOROTHIAZIDE [Concomitant]
     Indication: HYPERTENSION
     Dosage: UNK
  17. METOPROLOL SUCCINATE [Concomitant]
     Dosage: UNK

REACTIONS (11)
  - FAECES HARD [None]
  - MEMORY IMPAIRMENT [None]
  - ABDOMINAL DISCOMFORT [None]
  - INFECTION [None]
  - DRUG INEFFECTIVE [None]
  - GASTROINTESTINAL DISORDER [None]
  - THYROID DISORDER [None]
  - DIARRHOEA [None]
  - WEIGHT DECREASED [None]
  - ABDOMINAL PAIN [None]
  - HEADACHE [None]
